FAERS Safety Report 5945191-6 (Version None)
Quarter: 2008Q4

REPORT INFORMATION
  Report Type: 
  Country: None (occurrence: None)
  Receive Date: 20081107
  Receipt Date: 20081031
  Transmission Date: 20090506
  Serious: Yes (Other)
  Sender: FDA-Public Use
  Company Number: B0545041A

PATIENT
  Age: 50 Year
  Sex: Male

DRUGS (6)
  1. KIVEXA [Suspect]
     Indication: HIV INFECTION
     Route: 065
     Dates: start: 20050101, end: 20060111
  2. EPIVIR [Suspect]
     Indication: HIV INFECTION
     Route: 065
     Dates: start: 20040902, end: 20050630
  3. ZIAGEN [Suspect]
     Indication: HIV INFECTION
     Route: 065
     Dates: start: 20040902, end: 20050630
  4. NORVIR [Suspect]
     Indication: HIV INFECTION
     Route: 048
  5. REYATAZ [Suspect]
     Indication: HIV INFECTION
     Route: 048
  6. HEPSERA [Concomitant]
     Route: 048

REACTIONS (1)
  - HEPATOTOXICITY [None]
